FAERS Safety Report 7420487-X (Version None)
Quarter: 2011Q2

REPORT INFORMATION
  Report Type: 
  Country: None (occurrence: None)
  Receive Date: 20110418
  Receipt Date: 20110408
  Transmission Date: 20111010
  Serious: No
  Sender: FDA-Public Use
  Company Number: US-JNJFOC-20110404357

PATIENT
  Sex: Female
  Weight: 85.73 kg

DRUGS (4)
  1. UNKNOWN MEDICATION [Concomitant]
     Indication: BLOOD PRESSURE
     Route: 048
  2. WELLBUTRIN [Concomitant]
     Indication: ILL-DEFINED DISORDER
     Route: 048
  3. FENTANYL-100 [Suspect]
     Indication: FIBROMYALGIA
     Route: 062
  4. FENTANYL-100 [Suspect]
     Indication: ACCIDENT
     Route: 062

REACTIONS (2)
  - PRODUCT QUALITY ISSUE [None]
  - WRONG TECHNIQUE IN DRUG USAGE PROCESS [None]
